FAERS Safety Report 10362151 (Version 2)
Quarter: 2014Q3

REPORT INFORMATION
  Report Type: Spontaneous
  Country: BR (occurrence: BR)
  Receive Date: 20140805
  Receipt Date: 20140811
  Transmission Date: 20150326
  Serious: Yes (Other)
  Sender: FDA-Public Use
  Company Number: BR-ROCHE-1445210

PATIENT
  Age: 47 Year
  Sex: Female

DRUGS (11)
  1. ROCEFIN [Suspect]
     Active Substance: CEFTRIAXONE SODIUM
     Indication: ANTIBIOTIC THERAPY
     Route: 042
     Dates: start: 20140311
  2. METRONIDAZOLE. [Concomitant]
     Active Substance: METRONIDAZOLE
  3. LATEX [Suspect]
     Active Substance: NATURAL LATEX RUBBER
     Indication: PRODUCT USED FOR UNKNOWN INDICATION
     Route: 065
  4. PROPOFOL. [Concomitant]
     Active Substance: PROPOFOL
  5. KETAMINE [Concomitant]
     Active Substance: KETAMINE
  6. DIPYRONE [Concomitant]
     Active Substance: DIPYRONE
  7. REMIFENTANIL [Concomitant]
     Active Substance: REMIFENTANIL
  8. ROCURONIUM [Concomitant]
     Active Substance: ROCURONIUM BROMIDE
  9. MORPHINE [Concomitant]
     Active Substance: MORPHINE
  10. SEVOFLURANE. [Concomitant]
     Active Substance: SEVOFLURANE
  11. FENTANYL. [Concomitant]
     Active Substance: FENTANYL

REACTIONS (4)
  - Blood pressure decreased [Recovered/Resolved]
  - Bronchospasm [Recovered/Resolved]
  - Erythema [Recovered/Resolved]
  - Eczema [Recovered/Resolved]

NARRATIVE: CASE EVENT DATE: 20140311
